FAERS Safety Report 9937599 (Version 1)
Quarter: 2014Q1

REPORT INFORMATION
  Report Type: Spontaneous
  Country: TW (occurrence: TW)
  Receive Date: 20140303
  Receipt Date: 20140303
  Transmission Date: 20141002
  Serious: Yes (Hospitalization, Other)
  Sender: FDA-Public Use
  Company Number: TW-ROCHE-1358012

PATIENT
  Sex: Female
  Weight: 48 kg

DRUGS (3)
  1. ACTEMRA [Suspect]
     Indication: PRODUCT USED FOR UNKNOWN INDICATION
     Route: 042
     Dates: start: 20131129, end: 20131227
  2. SALAZOSULFAPYRIDINE [Concomitant]
     Route: 065
  3. CHLORZOXAZONE [Concomitant]
     Route: 065

REACTIONS (2)
  - Tuberculosis [Unknown]
  - Oedema [Recovered/Resolved]
